FAERS Safety Report 8901656 (Version 1)
Quarter: 2012Q4

REPORT INFORMATION
  Report Type: Spontaneous
  Country: US (occurrence: None)
  Receive Date: 20121108
  Receipt Date: 20121108
  Transmission Date: 20130627
  Serious: Yes (Hospitalization)
  Sender: FDA-Public Use
  Company Number: None

PATIENT
  Age: 85 Year
  Sex: Male
  Weight: 68.6 kg

DRUGS (1)
  1. TAMSULOSIN [Suspect]
     Dosage: 0.4 MG EVERY DAY PO
     Route: 048
     Dates: start: 20070612, end: 20090317

REACTIONS (5)
  - Rash erythematous [None]
  - Purpura [None]
  - Scratch [None]
  - Drug eruption [None]
  - Vasculitis [None]
